FAERS Safety Report 8246997-3 (Version None)
Quarter: 2012Q1

REPORT INFORMATION
  Report Type: 
  Country: None (occurrence: None)
  Receive Date: 20120330
  Receipt Date: 20120330
  Transmission Date: 20120608
  Serious: Yes (Other)
  Sender: FDA-Public Use
  Company Number: None

PATIENT
  Age: 53 Year
  Sex: Female
  Weight: 73.481 kg

DRUGS (1)
  1. CLINDAMYCIN [Suspect]
     Indication: OSTEOMYELITIS
     Route: 048
     Dates: start: 20120315, end: 20120322

REACTIONS (2)
  - DYSPEPSIA [None]
  - DRUG INEFFECTIVE [None]
